FAERS Safety Report 7298301-5 (Version None)
Quarter: 2011Q1

REPORT INFORMATION
  Report Type: 
  Country: None (occurrence: None)
  Receive Date: 20110217
  Receipt Date: 20100329
  Transmission Date: 20110831
  Serious: No
  Sender: FDA-Public Use
  Company Number: US-PFIZER INC-2010029095

PATIENT
  Sex: Female
  Weight: 104 kg

DRUGS (4)
  1. OXYGEN [Concomitant]
     Dosage: UNK
  2. REVATIO [Concomitant]
     Dosage: UNK
  3. XALATAN [Suspect]
     Indication: GLAUCOMA
     Dosage: UNK
     Dates: start: 20091001, end: 20100303
  4. TRACLEER [Concomitant]
     Dosage: UNK

REACTIONS (4)
  - OCULAR HYPERAEMIA [None]
  - EYE IRRITATION [None]
  - LACRIMATION INCREASED [None]
  - EYE PAIN [None]
